FAERS Safety Report 18565024 (Version 1)
Quarter: 2020Q4

REPORT INFORMATION
  Report Type: Spontaneous
  Country: US (occurrence: US)
  Receive Date: 20201201
  Receipt Date: 20201201
  Transmission Date: 20210114
  Serious: Yes (Other)
  Sender: FDA-Public Use
  Company Number: None

PATIENT
  Age: 61 Year
  Sex: Female
  Weight: 59 kg

DRUGS (1)
  1. BAMLANIVIMAB. [Suspect]
     Active Substance: BAMLANIVIMAB
     Indication: COVID-19
     Dosage: ?          OTHER FREQUENCY:ONCE;?
     Route: 041
     Dates: start: 20201117, end: 20201117

REACTIONS (7)
  - Micturition urgency [None]
  - Hyperhidrosis [None]
  - Flank pain [None]
  - Urinary tract infection [None]
  - Chills [None]
  - Pollakiuria [None]
  - Therapeutic product effect incomplete [None]

NARRATIVE: CASE EVENT DATE: 20201124
